FAERS Safety Report 20521607 (Version 2)
Quarter: 2022Q1

REPORT INFORMATION
  Report Type: Spontaneous
  Country: AR (occurrence: AR)
  Receive Date: 20220226
  Receipt Date: 20220317
  Transmission Date: 20220423
  Serious: Yes (Other)
  Sender: FDA-Public Use
  Company Number: AR-NOVARTISPH-CHNY2008AR01067

PATIENT
  Sex: Female

DRUGS (8)
  1. CALCIUM [Suspect]
     Active Substance: CALCIUM
     Indication: Hypoparathyroidism
     Dosage: 1 AND HALF OF 100MG, QD (SINCE 30 YEARS AGO APPROXIMATELY)
     Route: 065
  2. CALCIUM [Suspect]
     Active Substance: CALCIUM
     Indication: Hypocalcaemia
     Dosage: 1.5 DOSAGE FORM, QD
     Route: 065
  3. CALCIUM [Suspect]
     Active Substance: CALCIUM
     Indication: Vitamin D deficiency
     Dosage: 1.5 DOSAGE FORM, QD
     Route: 065
     Dates: start: 2006, end: 2006
  4. CALCIUM [Suspect]
     Active Substance: CALCIUM
     Dosage: 1.5 DOSAGE FORM, QD
     Route: 065
     Dates: start: 2006
  5. ERGOCALCIFEROL [Concomitant]
     Active Substance: ERGOCALCIFEROL
     Indication: Product used for unknown indication
     Dosage: UNK
     Route: 065
  6. LEVOTHYROXINE [Concomitant]
     Active Substance: LEVOTHYROXINE
     Indication: Product used for unknown indication
     Dosage: UNK
     Route: 065
  7. VITAMIN D3 [Concomitant]
     Active Substance: CHOLECALCIFEROL
     Indication: Product used for unknown indication
     Dosage: UNK
     Route: 065
  8. CALCIUM [Concomitant]
     Active Substance: CALCIUM
     Indication: Product used for unknown indication
     Dosage: UNK
     Route: 065

REACTIONS (7)
  - Tetany [Recovered/Resolved]
  - Tetany [Unknown]
  - Memory impairment [Recovering/Resolving]
  - Blood calcium decreased [Recovered/Resolved]
  - Malabsorption [Unknown]
  - Product supply issue [Recovering/Resolving]
  - Product physical issue [Recovering/Resolving]

NARRATIVE: CASE EVENT DATE: 20060101
